FAERS Safety Report 8544179 (Version 2)
Quarter: 2012Q4

REPORT INFORMATION
  Report Type: 
  Country: US (occurrence: US)
  Receive Date: 20120503
  Receipt Date: 20120907
  Transmission Date: 20130627
  Serious: Yes (Other)
  Sender: FDA-Public Use
  Company Number: US-BAYER-2012-042784

PATIENT
  Age: 21 Year
  Sex: Female
  Weight: 54.88 kg

DRUGS (8)
  1. YASMIN [Suspect]
     Dosage: UNK
     Dates: start: 20050719, end: 20060111
  2. YASMIN [Suspect]
     Dosage: UNK
     Dates: start: 20061106, end: 20070412
  3. YASMIN [Suspect]
     Dosage: UNK
     Dates: start: 20070916, end: 20070916
  4. AMOXICILLIN [Concomitant]
     Dosage: 875 mg, UNK
  5. NASACORT [Concomitant]
     Dosage: 55 ?g, UNK
     Route: 045
  6. CYCLOBENZAPRINE [Concomitant]
     Dosage: 10 mg, UNK
  7. IBUPROFEN [Concomitant]
     Dosage: 400 mg 600 mg tid (interpreted as three times daily) with food
     Dates: start: 20090622
  8. ORTHO TRI-CYCLEN LO [Concomitant]
     Dosage: UNK
     Dates: start: 20090520, end: 200909

REACTIONS (6)
  - Deep vein thrombosis [None]
  - Injury [None]
  - Pain [None]
  - Erythema nodosum [None]
  - Burning sensation [None]
  - Skin mass [None]
